FAERS Safety Report 22060234 (Version 1)
Quarter: 2023Q1

REPORT INFORMATION
  Report Type: Spontaneous
  Country: US (occurrence: None)
  Receive Date: 20230303
  Receipt Date: 20230303
  Transmission Date: 20230418
  Serious: Yes (Life-Threatening)
  Sender: FDA-Public Use
  Company Number: None

PATIENT
  Age: 43 Year
  Sex: Female
  Weight: 117 kg

DRUGS (28)
  1. CLONAZEPAM [Suspect]
     Active Substance: CLONAZEPAM
     Indication: Anxiety disorder
     Dosage: FREQUENCY : AT BEDTIME;?
     Route: 048
     Dates: start: 20221213, end: 20230116
  2. CLONAZEPAM [Suspect]
     Active Substance: CLONAZEPAM
     Indication: Panic disorder
  3. CLONAZEPAM [Suspect]
     Active Substance: CLONAZEPAM
     Indication: Panic disorder
  4. CLONAZEPAM [Suspect]
     Active Substance: CLONAZEPAM
     Indication: Panic disorder
  5. DEXTROAMPHET SACCHARAT, AMPHET ASPARTATE, DEXTROAMPHET SULFATE AND AMP [Suspect]
     Active Substance: AMPHETAMINE ASPARTATE\AMPHETAMINE SULFATE\DEXTROAMPHETAMINE SACCHARATE\DEXTROAMPHETAMINE SULFATE
     Indication: Attention deficit hyperactivity disorder
     Dosage: FREQUENCY : TWICE A DAY;?
     Route: 048
     Dates: start: 20230108, end: 20230116
  6. VITAMIN D3 [Concomitant]
     Active Substance: CHOLECALCIFEROL
  7. XYZAL [Concomitant]
     Active Substance: LEVOCETIRIZINE DIHYDROCHLORIDE
  8. ACETAMINOPHEN [Concomitant]
     Active Substance: ACETAMINOPHEN
  9. VYVANSE [Concomitant]
     Active Substance: LISDEXAMFETAMINE DIMESYLATE
  10. LAMICTAL [Concomitant]
     Active Substance: LAMOTRIGINE
  11. WELLBUTRIN [Concomitant]
     Active Substance: BUPROPION HYDROCHLORIDE
  12. AZELASTINE [Concomitant]
     Active Substance: AZELASTINE
  13. FLEXERIL [Concomitant]
     Active Substance: CYCLOBENZAPRINE HYDROCHLORIDE
  14. MAXALT [Concomitant]
     Active Substance: RIZATRIPTAN BENZOATE
  15. MIRENA [Concomitant]
     Active Substance: LEVONORGESTREL
  16. NIZORAL [Concomitant]
     Active Substance: KETOCONAZOLE
  17. PHENAZOPYRIDINE [Concomitant]
     Active Substance: PHENAZOPYRIDINE
  18. VALTREX [Concomitant]
     Active Substance: VALACYCLOVIR HYDROCHLORIDE
  19. KETOTIFEN [Concomitant]
     Active Substance: KETOTIFEN
  20. FUM [Concomitant]
  21. Zadito [Concomitant]
  22. Multivitamin +Iron [Concomitant]
  23. L-Methyl [Concomitant]
  24. FOLATE SODIUM [Concomitant]
     Active Substance: FOLATE SODIUM
  25. MELATONIN [Concomitant]
     Active Substance: MELATONIN
  26. Smarter Greens [Concomitant]
  27. DIETARY SUPPLEMENT [Concomitant]
     Active Substance: DIETARY SUPPLEMENT
  28. WART REMOVER [Concomitant]
     Active Substance: SALICYLIC ACID

REACTIONS (27)
  - Product substitution issue [None]
  - Drug withdrawal syndrome [None]
  - Pain [None]
  - Depressed level of consciousness [None]
  - Impaired self-care [None]
  - Insomnia [None]
  - Mood swings [None]
  - Migraine [None]
  - Disturbance in attention [None]
  - Increased appetite [None]
  - Lack of satiety [None]
  - Chest discomfort [None]
  - Lethargy [None]
  - Feeling abnormal [None]
  - Amnesia [None]
  - Oropharyngeal pain [None]
  - Dysphonia [None]
  - Aphasia [None]
  - Asthenia [None]
  - Apathy [None]
  - Decreased interest [None]
  - Suicidal ideation [None]
  - Feeling of despair [None]
  - Helplessness [None]
  - Methylenetetrahydrofolate reductase gene mutation [None]
  - Condition aggravated [None]
  - Product availability issue [None]

NARRATIVE: CASE EVENT DATE: 20230109
